FAERS Safety Report 24150338 (Version 1)
Quarter: 2024Q3

REPORT INFORMATION
  Report Type: Spontaneous
  Country: US (occurrence: US)
  Receive Date: 20240730
  Receipt Date: 20240730
  Transmission Date: 20241016
  Serious: No
  Sender: CIPLA
  Company Number: US-CIPLA LTD.-2024US02311

PATIENT

DRUGS (1)
  1. TERBINAFINE [Suspect]
     Active Substance: TERBINAFINE
     Indication: Allergy to animal
     Dosage: UNK
     Route: 065

REACTIONS (4)
  - Brain fog [Unknown]
  - Abdominal discomfort [Unknown]
  - Dizziness [Unknown]
  - Off label use [Unknown]
